FAERS Safety Report 13664274 (Version 5)
Quarter: 2017Q3

REPORT INFORMATION
  Report Type: Spontaneous
  Country: US (occurrence: US)
  Receive Date: 20170619
  Receipt Date: 20170907
  Transmission Date: 20171127
  Serious: Yes (Hospitalization, Other)
  Sender: FDA-Public Use
  Company Number: US-PFIZER INC-2017260461

PATIENT
  Age: 95 Year
  Sex: Female
  Weight: 52 kg

DRUGS (7)
  1. LETROZOLE. [Concomitant]
     Active Substance: LETROZOLE
     Indication: NEOPLASM MALIGNANT
     Dosage: 2.5 MG, DAILY
     Route: 048
     Dates: start: 201311, end: 20170407
  2. AROMASIN [Suspect]
     Active Substance: EXEMESTANE
     Indication: BREAST CANCER
     Dosage: 25 MG, 1X/DAY
     Route: 048
     Dates: start: 20170407
  3. LUMIGAN [Concomitant]
     Active Substance: BIMATOPROST
     Dosage: 2 GTT, 1X/DAY
     Dates: start: 2017
  4. AROMASIN [Suspect]
     Active Substance: EXEMESTANE
     Dosage: 25 MG, DAILY
     Dates: start: 20170407
  5. ATENOLOL. [Concomitant]
     Active Substance: ATENOLOL
     Indication: PULSE ABNORMAL
     Dosage: 25 MG, 1X/DAY
  6. VITAMIN B12 [Concomitant]
     Active Substance: CYANOCOBALAMIN
     Dosage: UNK, MONTHLY
  7. MOTRIN [Concomitant]
     Active Substance: IBUPROFEN
     Indication: PAIN IN EXTREMITY
     Dosage: UNK, AS NEEDED
     Dates: start: 2013

REACTIONS (2)
  - Weight increased [Recovered/Resolved]
  - Blindness unilateral [Not Recovered/Not Resolved]

NARRATIVE: CASE EVENT DATE: 201704
